FAERS Safety Report 6756846-8 (Version None)
Quarter: 2010Q2

REPORT INFORMATION
  Report Type: 
  Country: None (occurrence: None)
  Receive Date: 20100604
  Receipt Date: 20100525
  Transmission Date: 20101027
  Serious: Yes (Other)
  Sender: FDA-Public Use
  Company Number: US-ABBOTT-10P-163-0641651-00

PATIENT
  Sex: Female
  Weight: 99.88 kg

DRUGS (6)
  1. SYNTHROID [Suspect]
     Indication: THYROIDECTOMY
     Dosage: 137MCG DAILY
     Route: 048
  2. CYTOMEL [Suspect]
     Indication: DRUG USE FOR UNKNOWN INDICATION
     Dosage: 2 TABS DAILY SKIP MON, WED, FRI 2ND DOSE
     Route: 048
     Dates: start: 20100505
  3. CALCIUM CARBONATE [Concomitant]
     Indication: DRUG USE FOR UNKNOWN INDICATION
     Dosage: DAILY
     Dates: start: 20100316
  4. HYDROCHLOROTHIAZIDE [Concomitant]
     Indication: DRUG USE FOR UNKNOWN INDICATION
     Dosage: 1/2 TAB DAILY
     Route: 048
     Dates: start: 20091020
  5. COREG [Concomitant]
     Indication: DRUG USE FOR UNKNOWN INDICATION
     Dosage: 6.25MG TWICE DAILY
     Route: 048
     Dates: start: 20090727
  6. ZOCOR [Concomitant]
     Indication: DRUG USE FOR UNKNOWN INDICATION
     Dosage: 20MG AT BEDTIME
     Route: 048
     Dates: start: 20080402

REACTIONS (8)
  - ABDOMINAL DISCOMFORT [None]
  - CHILLS [None]
  - CORONARY ARTERY DISEASE [None]
  - DIVERTICULITIS [None]
  - LYMPHADENOPATHY [None]
  - MALAISE [None]
  - NAUSEA [None]
  - SARCOIDOSIS [None]
